FAERS Safety Report 5460571-3 (Version None)
Quarter: 2007Q3

REPORT INFORMATION
  Report Type: 
  Country: None (occurrence: None)
  Receive Date: 20070919
  Receipt Date: 20070907
  Transmission Date: 20080115
  Serious: Yes (Other)
  Sender: FDA-Public Use
  Company Number: US-PFIZER INC-2007066243

PATIENT
  Sex: Female
  Weight: 47.6 kg

DRUGS (2)
  1. PROCARDIA XL [Suspect]
     Route: 048
  2. CHLORTHALIDONE [Concomitant]
     Dosage: DAILY DOSE:50MG-TEXT:50 MG ONCE DAILY

REACTIONS (3)
  - DIZZINESS [None]
  - LOSS OF CONSCIOUSNESS [None]
  - NAUSEA [None]
